FAERS Safety Report 6691630-5 (Version None)
Quarter: 2010Q2

REPORT INFORMATION
  Report Type: 
  Country: None (occurrence: None)
  Receive Date: 20100422
  Receipt Date: 20090917
  Transmission Date: 20101027
  Serious: No
  Sender: FDA-Public Use
  Company Number: US-ASTRAZENECA-2009SE13906

PATIENT
  Age: 48 Year
  Sex: Female
  Weight: 85.3 kg

DRUGS (3)
  1. TOPROL-XL [Suspect]
     Indication: ARRHYTHMIA
     Route: 048
     Dates: start: 20030101
  2. TOPROL-XL [Suspect]
     Route: 048
  3. SYNTHROID [Concomitant]
     Indication: THYROID NEOPLASM

REACTIONS (2)
  - ORTHOSTATIC HYPOTENSION [None]
  - WITHDRAWAL SYNDROME [None]
